FAERS Safety Report 8790063 (Version 1)
Quarter: 2012Q4

REPORT INFORMATION
  Report Type: 
  Country: DE (occurrence: DE)
  Receive Date: 20120917
  Receipt Date: 20120917
  Transmission Date: 20130627
  Serious: Yes (Congenital Anomaly)
  Sender: FDA-Public Use
  Company Number: DE-SANOFI-AVENTIS-2012SA065845

PATIENT

DRUGS (17)
  1. DELIX [Suspect]
     Indication: NEPHROTIC SYNDROME WITH LESION OF MEMBRANOUS GLOMERULONEPHRITIS
     Route: 064
  2. QUENSYL [Suspect]
     Indication: SYSTEMIC LUPUS ERYTHEMATOSUS
     Route: 064
  3. INEGY [Suspect]
     Indication: HYPERCHOLESTEROLAEMIA
     Route: 064
  4. TORASEMIDE [Suspect]
     Indication: NEPHROTIC SYNDROME WITH LESION OF MEMBRANOUS GLOMERULONEPHRITIS
     Route: 064
  5. TACROLIMUS [Suspect]
     Indication: SYSTEMIC LUPUS ERYTHEMATOSUS
     Route: 064
  6. RITUXIMAB [Suspect]
     Indication: SYSTEMIC LUPUS ERYTHEMATOSUS
     Route: 064
     Dates: end: 201112
  7. CYCLOPHOSPHAMIDE [Concomitant]
     Indication: SYSTEMIC LUPUS ERYTHEMATOSUS
     Dosage: 3000 [mg cumulative ]/ April -August 2011
     Route: 064
  8. CLEXANE [Concomitant]
     Indication: RECURRENT PULMONARY EMBOLISM
     Dosage: 200 [mg/d (2x100) ]
     Route: 064
     Dates: start: 20111214, end: 20120320
  9. PREDNISOLON [Concomitant]
     Dosage: 10 [mg/d ]/ every second day
     Route: 064
     Dates: start: 20111214, end: 20120320
  10. ACETYLSALICYLIC ACID [Concomitant]
     Indication: INFERIOR VENACAVAL THROMBOSIS
     Dosage: 100 [mg/d ]
     Route: 064
     Dates: start: 20111214, end: 20120320
  11. PANTOZOL [Concomitant]
     Indication: GASTRITIS PROPHYLAXIS
     Dosage: 40 [mg/d ]
     Route: 064
     Dates: start: 20111214, end: 20120320
  12. ALISKIREN [Concomitant]
     Indication: HYPERTENSION
     Dosage: 300 [mg/d ]
     Route: 064
     Dates: start: 20111214, end: 20120117
  13. SALBUTAMOL [Concomitant]
     Indication: ASTHMA
     Dosage: if required
     Route: 064
  14. NOVAMINSULFON [Concomitant]
     Indication: PAIN
     Dosage: probably only in hospital in week 5
     Route: 064
  15. MIFEGYNE [Concomitant]
     Indication: INDUCED ABORTION
     Route: 064
     Dates: start: 20120320, end: 20120320
  16. CYTOTEC [Concomitant]
     Indication: INDUCED ABORTION
     Route: 064
     Dates: start: 20120320, end: 20120320
  17. XARELTO [Concomitant]
     Indication: INFERIOR VENACAVAL THROMBOSIS
     Dosage: not known, if treatment started before or after missed abortion.
     Route: 064

REACTIONS (3)
  - Ventricular septal defect [Not Recovered/Not Resolved]
  - Foetal exposure during pregnancy [Unknown]
  - Truncus arteriosus persistent [Not Recovered/Not Resolved]
